FAERS Safety Report 15405043 (Version 1)
Quarter: 2018Q3

REPORT INFORMATION
  Report Type: Report from Study
  Country: IN (occurrence: IN)
  Receive Date: 20180920
  Receipt Date: 20180920
  Transmission Date: 20181010
  Serious: Yes (Hospitalization)
  Sender: FDA-Public Use
  Company Number: IN-CIPLA LTD.-2016IN08320

PATIENT

DRUGS (3)
  1. BUDESONIDE/FORMOTEROL [Suspect]
     Active Substance: BUDESONIDE\FORMOTEROL
     Indication: ASTHMA
     Dosage: UNK, (STRENGTH 200/6 MCG), 2 PUFFS, ONCE IN THE MORNING AND ONCE IN THE EVENING, BID
     Dates: start: 20090616
  2. LEVOSALBUTAMOL [Concomitant]
     Active Substance: LEVALBUTEROL
     Indication: SALVAGE THERAPY
     Dosage: 50 MCG, SOS (PRN)
     Dates: start: 20090522
  3. BUDESONIDE. [Suspect]
     Active Substance: BUDESONIDE
     Indication: ASTHMA
     Dosage: 100 MCG, BID, PMDI 2 PUFFS, INHALATION FOR 2 TO 4 WEEKS

REACTIONS (2)
  - Asthma [Recovered/Resolved]
  - Pyrexia [Recovered/Resolved]

NARRATIVE: CASE EVENT DATE: 20090709
